FAERS Safety Report 12711738 (Version 1)
Quarter: 2016Q3

REPORT INFORMATION
  Report Type: Spontaneous
  Country: MX (occurrence: MX)
  Receive Date: 20160902
  Receipt Date: 20160902
  Transmission Date: 20161109
  Serious: Yes (Other)
  Sender: FDA-Public Use
  Company Number: MX-SA-2016SA161599

PATIENT
  Age: 88 Year
  Sex: Female
  Weight: 50 kg

DRUGS (1)
  1. COAPROVEL [Suspect]
     Active Substance: HYDROCHLOROTHIAZIDE\IRBESARTAN
     Indication: HYPERTENSION
     Route: 048
     Dates: end: 201601

REACTIONS (1)
  - Brain stem stroke [Recovered/Resolved]

NARRATIVE: CASE EVENT DATE: 201601
